FAERS Safety Report 23533011 (Version 1)
Quarter: 2024Q1

REPORT INFORMATION
  Report Type: Spontaneous
  Country: US (occurrence: None)
  Receive Date: 20240216
  Receipt Date: 20240216
  Transmission Date: 20240409
  Serious: Yes (Other)
  Sender: FDA-Public Use
  Company Number: None

PATIENT
  Age: 27 Year
  Sex: Female
  Weight: 95.7 kg

DRUGS (1)
  1. SOLU-MEDROL [Suspect]
     Active Substance: METHYLPREDNISOLONE SODIUM SUCCINATE
     Indication: Multiple sclerosis
     Dates: start: 20240126, end: 20240129

REACTIONS (7)
  - Infusion related reaction [None]
  - Pain in extremity [None]
  - Dyspnoea [None]
  - Bradycardia [None]
  - Autonomic nervous system imbalance [None]
  - Multiple sclerosis [None]
  - Anaphylactic reaction [None]

NARRATIVE: CASE EVENT DATE: 20240129
